FAERS Safety Report 19742359 (Version 3)
Quarter: 2024Q2

REPORT INFORMATION
  Report Type: Spontaneous
  Country: PL (occurrence: PL)
  Receive Date: 20210824
  Receipt Date: 20240408
  Transmission Date: 20240716
  Serious: Yes (Other)
  Sender: FDA-Public Use
  Company Number: PL-SUN PHARMACEUTICAL INDUSTRIES LTD-2021RR-285100

PATIENT
  Age: 68 Year
  Sex: Female

DRUGS (14)
  1. PEMETREXED [Suspect]
     Active Substance: PEMETREXED
     Indication: Lung adenocarcinoma stage IV
     Dosage: 3 CYCLES
     Route: 042
     Dates: start: 20180828, end: 20181016
  2. PEMETREXED [Suspect]
     Active Substance: PEMETREXED
     Indication: Lung adenocarcinoma
     Dosage: 3 CYCLES
     Route: 042
     Dates: start: 20180828, end: 20181113
  3. PEMETREXED [Suspect]
     Active Substance: PEMETREXED
     Indication: Chemotherapy
  4. CISPLATIN [Suspect]
     Active Substance: CISPLATIN
     Indication: Lung adenocarcinoma stage IV
     Dosage: 3 CYCLES
     Route: 065
     Dates: start: 20180828, end: 20181016
  5. CISPLATIN [Suspect]
     Active Substance: CISPLATIN
     Indication: Lung adenocarcinoma
     Dosage: 3 CYCLES
     Route: 065
     Dates: start: 20180828, end: 20181113
  6. CISPLATIN [Suspect]
     Active Substance: CISPLATIN
     Indication: Chemotherapy
  7. DOCETAXEL [Suspect]
     Active Substance: DOCETAXEL\DOCETAXEL ANHYDROUS
     Indication: Lung adenocarcinoma stage IV
     Dosage: 4 CYCLES IN TOTAL
     Route: 042
     Dates: start: 20181220
  8. DOCETAXEL [Suspect]
     Active Substance: DOCETAXEL\DOCETAXEL ANHYDROUS
     Indication: Chemotherapy
  9. DOCETAXEL [Suspect]
     Active Substance: DOCETAXEL\DOCETAXEL ANHYDROUS
     Indication: Disease progression
  10. DEXAMETHASONE [Suspect]
     Active Substance: DEXAMETHASONE
     Indication: Premedication
     Dosage: UNK
     Route: 065
     Dates: start: 20180828
  11. VITAMIN B12 [Suspect]
     Active Substance: CYANOCOBALAMIN
     Indication: Premedication
     Dosage: UNK
     Route: 065
     Dates: start: 20180828
  12. FOLIC ACID [Suspect]
     Active Substance: FOLIC ACID
     Indication: Premedication
     Dosage: UNK
     Route: 065
  13. NINTEDANIB [Suspect]
     Active Substance: NINTEDANIB
     Indication: Lung adenocarcinoma stage IV
     Dosage: UNK
     Route: 065
     Dates: start: 20181221, end: 20191017
  14. NINTEDANIB [Suspect]
     Active Substance: NINTEDANIB
     Indication: Disease progression

REACTIONS (8)
  - Paraesthesia [Unknown]
  - Malignant neoplasm progression [Unknown]
  - Lung adenocarcinoma [Unknown]
  - Disease progression [Unknown]
  - Blood creatinine increased [Unknown]
  - Neutropenia [Unknown]
  - Transaminases increased [Unknown]
  - Drug ineffective [Unknown]

NARRATIVE: CASE EVENT DATE: 20181016
